FAERS Safety Report 11264435 (Version 1)
Quarter: 2015Q3

REPORT INFORMATION
  Report Type: Spontaneous
  Country: US (occurrence: US)
  Receive Date: 20150713
  Receipt Date: 20150713
  Transmission Date: 20151125
  Serious: No
  Sender: FDA-Public Use
  Company Number: US-JNJFOC-20150609262

PATIENT
  Age: 4 Decade
  Sex: Female

DRUGS (1)
  1. REMICADE [Suspect]
     Active Substance: INFLIXIMAB
     Indication: RHEUMATOID ARTHRITIS
     Dosage: STRENGTH OF THE INFUSION WAS 5MG/KG.
     Route: 042
     Dates: start: 20130103

REACTIONS (3)
  - Dyspnoea [Unknown]
  - Cough [Unknown]
  - Skin discolouration [Unknown]
